FAERS Safety Report 21896550 (Version 1)
Quarter: 2023Q1

REPORT INFORMATION
  Report Type: Spontaneous
  Country: CA (occurrence: CA)
  Receive Date: 20230123
  Receipt Date: 20230123
  Transmission Date: 20230417
  Serious: Yes (Other)
  Sender: FDA-Public Use
  Company Number: ALC2023CA000618

PATIENT
  Sex: Male

DRUGS (1)
  1. LUTEIN\MINERALS\VITAMINS\ZEAXANTHIN [Suspect]
     Active Substance: LUTEIN\MINERALS\VITAMINS\ZEAXANTHIN
     Indication: Product used for unknown indication
     Route: 048

REACTIONS (2)
  - Foreign body in throat [Recovered/Resolved]
  - Wrong technique in product usage process [Unknown]
